FAERS Safety Report 18975466 (Version 1)
Quarter: 2021Q1

REPORT INFORMATION
  Report Type: Report from Study
  Country: None (occurrence: AU)
  Receive Date: 20210305
  Receipt Date: 20210305
  Transmission Date: 20210420
  Serious: Yes (Death, Hospitalization, Other)
  Sender: FDA-Public Use
  Company Number: AU-ABBVIE-21P-008-3767523-00

PATIENT
  Age: 73 Year
  Sex: Female
  Weight: 63.5 kg

DRUGS (3)
  1. LOW DOSE CYTARABINE [Concomitant]
     Indication: ACUTE MYELOID LEUKAEMIA
     Dosage: RECEIVED 1 CYCLE
  2. MIDOSTAURIN [Concomitant]
     Active Substance: MIDOSTAURIN
     Indication: ACUTE MYELOID LEUKAEMIA
     Dosage: RECEIVED 1 CYCLE
     Route: 048
     Dates: start: 20201214, end: 20201227
  3. VENETOCLAX. [Suspect]
     Active Substance: VENETOCLAX
     Indication: ACUTE MYELOID LEUKAEMIA
     Dosage: RECEIVED 1 CYCLE
     Route: 048
     Dates: start: 20201204, end: 20201227

REACTIONS (2)
  - Thrombocytopenia [Fatal]
  - Osteoarthritis [Unknown]

NARRATIVE: CASE EVENT DATE: 20201212
